FAERS Safety Report 18966732 (Version 1)
Quarter: 2021Q1

REPORT INFORMATION
  Report Type: Report from Study
  Country: US (occurrence: US)
  Receive Date: 20210303
  Receipt Date: 20210303
  Transmission Date: 20210420
  Serious: Yes (Hospitalization)
  Sender: FDA-Public Use
  Company Number: US-BIOGEN-2021BI00983996

PATIENT
  Sex: Female

DRUGS (2)
  1. VUMERITY [Suspect]
     Active Substance: DIROXIMEL FUMARATE
     Route: 048
  2. VUMERITY [Suspect]
     Active Substance: DIROXIMEL FUMARATE
     Indication: MULTIPLE SCLEROSIS
     Route: 048
     Dates: start: 202102

REACTIONS (5)
  - Abdominal discomfort [Unknown]
  - Multiple sclerosis relapse [Unknown]
  - Muscle spasms [Unknown]
  - Pruritus [Unknown]
  - Abdominal distension [Unknown]
